FAERS Safety Report 6667932-5 (Version None)
Quarter: 2010Q2

REPORT INFORMATION
  Report Type: 
  Country: None (occurrence: None)
  Receive Date: 20100405
  Receipt Date: 20100401
  Transmission Date: 20101027
  Serious: Yes (Life-Threatening)
  Sender: FDA-Public Use
  Company Number: UG-ABBOTT-10P-165-0636114-00

PATIENT
  Age: 5 Year
  Sex: Female

DRUGS (5)
  1. ALUVIA TABLETS [Suspect]
     Indication: PROPHYLAXIS
     Route: 048
     Dates: start: 20091026
  2. ALUVIA TABLETS [Suspect]
     Indication: MALARIA
  3. LAMIVUDINE (EPIVIR HBV) [Concomitant]
     Indication: HIV INFECTION
     Dates: start: 20091026
  4. AZT [Concomitant]
     Indication: HIV INFECTION
     Dates: start: 20091026, end: 20100325
  5. COTRIM [Concomitant]
     Indication: DRUG USE FOR UNKNOWN INDICATION
     Dates: end: 20100325

REACTIONS (1)
  - NEUTROPENIA [None]
